FAERS Safety Report 12813860 (Version 1)
Quarter: 2016Q4

REPORT INFORMATION
  Report Type: Report from Study
  Country: US (occurrence: US)
  Receive Date: 20161006
  Receipt Date: 20161006
  Transmission Date: 20170207
  Serious: No
  Sender: FDA-Public Use
  Company Number: US-AMGEN-USASL2016075115

PATIENT
  Age: 67 Year
  Sex: Female

DRUGS (1)
  1. PROLIA [Suspect]
     Active Substance: DENOSUMAB
     Indication: PRODUCT USED FOR UNKNOWN INDICATION
     Dosage: UNK
     Route: 065
     Dates: start: 20151214

REACTIONS (10)
  - Neuralgia [Unknown]
  - Myalgia [Unknown]
  - Chest discomfort [Unknown]
  - Foot deformity [Unknown]
  - Musculoskeletal discomfort [Unknown]
  - Hand deformity [Unknown]
  - Arthralgia [Unknown]
  - Joint swelling [Unknown]
  - Tendon pain [Unknown]
  - Elbow deformity [Unknown]

NARRATIVE: CASE EVENT DATE: 20151217
